FAERS Safety Report 7312884-8 (Version None)
Quarter: 2011Q1

REPORT INFORMATION
  Report Type: 
  Country: None (occurrence: None)
  Receive Date: 20110224
  Receipt Date: 20110209
  Transmission Date: 20110831
  Serious: Yes (Death)
  Sender: FDA-Public Use
  Company Number: JP-ROCHE-742997

PATIENT
  Sex: Female
  Weight: 64.4 kg

DRUGS (3)
  1. CARBOPLATIN [Concomitant]
     Dosage: NOTE: DOSAGE IS UNCERTAIN.
     Route: 041
     Dates: start: 20101109, end: 20101109
  2. PACLITAXEL [Concomitant]
     Dosage: NOTE: DOSAGE IS UNCERTAIN.
     Route: 041
     Dates: start: 20101109, end: 20101109
  3. AVASTIN [Suspect]
     Indication: LUNG ADENOCARCINOMA
     Dosage: NOTE: DOSAGE IS UNCERTAIN.
     Route: 041
     Dates: start: 20101109, end: 20101109

REACTIONS (2)
  - PULMONARY ALVEOLAR HAEMORRHAGE [None]
  - TUMOUR EMBOLISM [None]
